FAERS Safety Report 10078494 (Version 1)
Quarter: 2014Q2

REPORT INFORMATION
  Report Type: Spontaneous
  Country: US (occurrence: US)
  Receive Date: 20140415
  Receipt Date: 20140415
  Transmission Date: 20141212
  Serious: Yes (Hospitalization)
  Sender: FDA-Public Use
  Company Number: US-DRREDDYS-USA/USA/14/0039625

PATIENT
  Age: 3 Year
  Sex: Male

DRUGS (9)
  1. SILVER SULFADIAZINE [Suspect]
     Indication: BURNS SECOND DEGREE
     Route: 061
  2. SILVER SULFADIAZINE [Suspect]
     Indication: BURNS THIRD DEGREE
  3. THERMAZENE [Suspect]
     Indication: BURNS SECOND DEGREE
     Route: 061
  4. THERMAZENE [Suspect]
     Indication: BURNS THIRD DEGREE
  5. SILVADENE [Suspect]
     Indication: BURNS SECOND DEGREE
     Route: 061
  6. SILVADENE [Suspect]
     Indication: BURNS THIRD DEGREE
  7. LORAZEPAM [Suspect]
     Indication: PRODUCT USED FOR UNKNOWN INDICATION
     Route: 065
  8. NYSTATIN [Concomitant]
     Indication: BURNS SECOND DEGREE
     Route: 061
  9. NYSTATIN [Concomitant]
     Indication: BURNS THIRD DEGREE

REACTIONS (2)
  - Lactic acidosis [Recovered/Resolved]
  - Metabolic acidosis [Recovered/Resolved]
